FAERS Safety Report 11754529 (Version 1)
Quarter: 2015Q4

REPORT INFORMATION
  Report Type: Spontaneous
  Country: US (occurrence: None)
  Receive Date: 20151118
  Receipt Date: 20151118
  Transmission Date: 20160304
  Serious: No
  Sender: FDA-Public Use
  Company Number: None

PATIENT
  Age: 55 Year
  Sex: Male

DRUGS (1)
  1. RIBASPHERE [Suspect]
     Active Substance: RIBAVIRIN
     Dosage: STRENGTH:  200    DOSE FORM: ORAL   FREQUENCY:  3 TWICE DAILY
     Route: 048

REACTIONS (2)
  - Dizziness [None]
  - Fatigue [None]

NARRATIVE: CASE EVENT DATE: 20151116
